FAERS Safety Report 9553058 (Version 4)
Quarter: 2017Q1

REPORT INFORMATION
  Report Type: Report from Study
  Country: KR (occurrence: KR)
  Receive Date: 20130925
  Receipt Date: 20170111
  Transmission Date: 20170429
  Serious: Yes (Other)
  Sender: FDA-Public Use
  Company Number: PHHY2013KR102269

PATIENT
  Age: 53 Year
  Sex: Male

DRUGS (4)
  1. ESOMEPRAZOLE [Concomitant]
     Active Substance: ESOMEPRAZOLE
     Indication: DUODENAL ULCER
  2. ESOMEPRAZOLE [Concomitant]
     Active Substance: ESOMEPRAZOLE
     Indication: GASTROINTESTINAL ULCER
     Dosage: 1500 MG, UNK
     Route: 048
     Dates: start: 20130215, end: 20130315
  3. TASIGNA [Suspect]
     Active Substance: NILOTINIB
     Dosage: 800 MG, PER DAY
     Route: 048
     Dates: start: 20121106
  4. TASIGNA [Suspect]
     Active Substance: NILOTINIB
     Indication: CHRONIC MYELOID LEUKAEMIA
     Dosage: 600 MG, PER DAY
     Route: 048
     Dates: start: 20121030, end: 20121105

REACTIONS (4)
  - Duodenal ulcer [Recovered/Resolved]
  - Melaena [Recovered/Resolved]
  - Abdominal discomfort [Recovered/Resolved]
  - Rash [Recovered/Resolved]

NARRATIVE: CASE EVENT DATE: 20121106
